FAERS Safety Report 9606846 (Version 1)
Quarter: 2013Q4

REPORT INFORMATION
  Report Type: Spontaneous
  Country: US (occurrence: US)
  Receive Date: 20131008
  Receipt Date: 20131008
  Transmission Date: 20140711
  Serious: No
  Sender: FDA-Public Use
  Company Number: US-AMGEN-USASP2013061127

PATIENT
  Age: 78 Year
  Sex: Female

DRUGS (4)
  1. PROLIA [Suspect]
     Indication: OSTEOPOROSIS POSTMENOPAUSAL
     Dosage: UNK
     Route: 065
     Dates: start: 2012
  2. VITAMIN D                          /00107901/ [Concomitant]
  3. VITAMIN C                          /00008001/ [Concomitant]
  4. FISH OIL [Concomitant]

REACTIONS (5)
  - Tooth loss [Recovered/Resolved]
  - Pain in jaw [Recovered/Resolved]
  - Tooth disorder [Recovered/Resolved]
  - Feeling abnormal [Recovered/Resolved]
  - Teeth brittle [Recovered/Resolved]
